FAERS Safety Report 6029088-1 (Version None)
Quarter: 2009Q1

REPORT INFORMATION
  Report Type: 
  Country: None (occurrence: None)
  Receive Date: 20090106
  Receipt Date: 20081122
  Transmission Date: 20090719
  Serious: Yes (Other)
  Sender: FDA-Public Use
  Company Number: FR-PFIZER INC-2008085466

PATIENT

DRUGS (1)
  1. LYRICA [Suspect]
     Indication: PARAESTHESIA
     Dates: start: 20081001

REACTIONS (2)
  - CARDIAC FAILURE [None]
  - SUFFOCATION FEELING [None]
